FAERS Safety Report 7356739-1 (Version None)
Quarter: 2011Q1

REPORT INFORMATION
  Report Type: 
  Country: None (occurrence: None)
  Receive Date: 20110316
  Receipt Date: 20110306
  Transmission Date: 20110831
  Serious: Yes (Other)
  Sender: FDA-Public Use
  Company Number: US-RB-022663-11

PATIENT
  Age: 30 Month
  Sex: Male

DRUGS (1)
  1. DELSYM [Suspect]
     Dosage: DOSING STARTED ON 06-MAR-2011
     Route: 048

REACTIONS (4)
  - FEELING DRUNK [None]
  - VOMITING [None]
  - ACCIDENTAL DRUG INTAKE BY CHILD [None]
  - GAIT DISTURBANCE [None]
